FAERS Safety Report 5041913-X (Version None)
Quarter: 2006Q2

REPORT INFORMATION
  Report Type: 
  Country: None (occurrence: None)
  Receive Date: 20060630
  Receipt Date: 20060621
  Transmission Date: 20061013
  Serious: Yes (Hospitalization, Other)
  Sender: FDA-Public Use
  Company Number: 2003-09-3016

PATIENT
  Age: 50 Year
  Sex: Female
  Weight: 74.8435 kg

DRUGS (5)
  1. TEMODAR [Suspect]
     Indication: OLIGODENDROGLIOMA
     Dosage: 375 MG-UNK* ORAL; SEE IMAGE
     Route: 048
     Dates: start: 20030707
  2. KYTRIL [Concomitant]
  3. ZOFRAN [Concomitant]
  4. AYGESTIN [Concomitant]
  5. VICODIN [Concomitant]

REACTIONS (9)
  - ABDOMINAL PAIN UPPER [None]
  - CHOLELITHIASIS [None]
  - CONSTIPATION [None]
  - GALLBLADDER POLYP [None]
  - LYMPHADENOPATHY [None]
  - MENTAL DISORDER [None]
  - MUSCLE SPASMS [None]
  - TREATMENT NONCOMPLIANCE [None]
  - UTERINE LEIOMYOMA [None]
